FAERS Safety Report 5979848-8 (Version None)
Quarter: 2008Q4

REPORT INFORMATION
  Report Type: 
  Country: None (occurrence: None)
  Receive Date: 20081126
  Receipt Date: 20081112
  Transmission Date: 20090506
  Serious: No
  Sender: FDA-Public Use
  Company Number: 004995

PATIENT
  Age: 5 Year
  Sex: Male

DRUGS (3)
  1. BUSULFEX [Suspect]
     Indication: STEM CELL TRANSPLANT
     Dosage: 1.1  ML, QID,  INTRAVENOUS
     Route: 042
  2. CYTARABINE [Concomitant]
  3. ALKERAN [Concomitant]

REACTIONS (2)
  - GRAFT VERSUS HOST DISEASE [None]
  - INTERSTITIAL LUNG DISEASE [None]
